FAERS Safety Report 4862348-6 (Version None)
Quarter: 2005Q4

REPORT INFORMATION
  Report Type: 
  Country: None (occurrence: None)
  Receive Date: 20051221
  Receipt Date: 20051209
  Transmission Date: 20060501
  Serious: Yes (Other)
  Sender: FDA-Public Use
  Company Number: CA-BRISTOL-MYERS SQUIBB COMPANY-13219712

PATIENT
  Age: 76 Year
  Sex: Male

DRUGS (12)
  1. TEQUIN [Suspect]
     Route: 048
  2. ASPIRIN [Concomitant]
  3. AVANDIA [Concomitant]
  4. BEZALIP [Concomitant]
  5. GLYBURIDE [Concomitant]
  6. LASIX [Concomitant]
  7. LIPITOR [Concomitant]
  8. METFORMIN HCL [Concomitant]
  9. METOPROLOL [Concomitant]
  10. POTASSIUM [Concomitant]
  11. SPIRIVA [Concomitant]
  12. VITAMIN B-12 [Concomitant]
     Route: 030

REACTIONS (4)
  - ASTHENIA [None]
  - ERYTHEMA [None]
  - FLUSHING [None]
  - HYPOGLYCAEMIA [None]
